FAERS Safety Report 18270924 (Version 2)
Quarter: 2020Q4

REPORT INFORMATION
  Report Type: Report from Study
  Country: PE (occurrence: PE)
  Receive Date: 20200915
  Receipt Date: 20201020
  Transmission Date: 20210113
  Serious: Yes (Other)
  Sender: FDA-Public Use
  Company Number: PE-SEATTLE GENETICS-2019SGN03009

PATIENT
  Age: 27 Year
  Sex: Male

DRUGS (1)
  1. BRENTUXIMAB VEDOTIN [Suspect]
     Active Substance: BRENTUXIMAB VEDOTIN
     Indication: HODGKIN^S DISEASE
     Dosage: 140 MILLIGRAM
     Route: 042
     Dates: start: 20190723, end: 20200215

REACTIONS (3)
  - Hodgkin^s disease [Not Recovered/Not Resolved]
  - Depression [Unknown]
  - Influenza [Unknown]

NARRATIVE: CASE EVENT DATE: 202009
